FAERS Safety Report 8118731-9 (Version None)
Quarter: 2011Q4

REPORT INFORMATION
  Report Type: 
  Country: None (occurrence: None)
  Receive Date: 20111227
  Receipt Date: 20111017
  Transmission Date: 20120403
  Serious: No
  Sender: FDA-Public Use
  Company Number: PHEH2011US07194

PATIENT
  Age: 58 Year
  Sex: Male

DRUGS (4)
  1. GILENYA [Suspect]
     Indication: MULTIPLE SCLEROSIS
     Dosage: 0.5 MG, QD, ORAL
     Route: 048
     Dates: start: 20110216
  2. CODEINE SULFATE [Concomitant]
  3. VALIUM [Concomitant]
  4. PAIN MEDICINE [Concomitant]

REACTIONS (1)
  - CONSTIPATION [None]
